FAERS Safety Report 4590582-1 (Version None)
Quarter: 2005Q1

REPORT INFORMATION
  Report Type: 
  Country: None (occurrence: None)
  Receive Date: 20050224
  Receipt Date: 20050217
  Transmission Date: 20050727
  Serious: Yes (Life-Threatening, Hospitalization)
  Sender: FDA-Public Use
  Company Number: FR-GLAXOSMITHKLINE-B0372101A

PATIENT
  Age: 41 Year
  Sex: Female

DRUGS (2)
  1. SALBUMOL [Suspect]
     Indication: THREATENED LABOUR
     Dosage: 4MG THREE TIMES PER DAY
     Route: 048
     Dates: start: 20050104, end: 20050111
  2. NASONEX [Concomitant]
     Dosage: 100MCG PER DAY
     Route: 045
     Dates: start: 20050104, end: 20050112

REACTIONS (8)
  - ANGINA UNSTABLE [None]
  - CARDIOGENIC SHOCK [None]
  - CORONARY ARTERY DISSECTION [None]
  - CORONARY ARTERY OCCLUSION [None]
  - DRUG EXPOSURE DURING PREGNANCY [None]
  - HAEMOGLOBIN DECREASED [None]
  - MYOCARDIAL INFARCTION [None]
  - VENTRICULAR DYSFUNCTION [None]
